FAERS Safety Report 7746114-X (Version None)
Quarter: 2011Q3

REPORT INFORMATION
  Report Type: 
  Country: None (occurrence: None)
  Receive Date: 20110913
  Receipt Date: 20110902
  Transmission Date: 20111222
  Serious: Yes (Hospitalization)
  Sender: FDA-Public Use
  Company Number: JP-UCBSA-003576

PATIENT
  Sex: Female

DRUGS (22)
  1. CERTOLIZUMAB PEGOL [Suspect]
     Route: 058
     Dates: start: 20100722
  2. CANDESARTAN CILEXETIL [Concomitant]
     Indication: BLOOD PRESSURE INCREASED
     Dates: start: 20081001
  3. ISONIAZID [Concomitant]
     Dates: start: 20090603, end: 20100318
  4. REBAMIPIDE [Concomitant]
     Indication: PROPHYLAXIS AGAINST GASTROINTESTINAL ULCER
     Route: 048
     Dates: start: 20090301, end: 20090603
  5. PREDNISOLONE FARNESYLATE [Concomitant]
     Dosage: PROPER DOSE
     Dates: start: 20090416
  6. KETOPROFEN [Concomitant]
     Dosage: ONE DOSAGE FORM
     Dates: start: 20090416
  7. CERTOLIZUMAB PEGOL [Suspect]
     Indication: RHEUMATOID ARTHRITIS
     Route: 058
     Dates: start: 20091001, end: 20100527
  8. TIQUIZIUM BROMIDE [Concomitant]
     Indication: PROPHYLAXIS AGAINST GASTROINTESTINAL ULCER
     Route: 048
     Dates: start: 20090301, end: 20090603
  9. CELECOXIB [Concomitant]
     Dates: start: 20090416
  10. BETAMETHASONE [Concomitant]
     Dates: start: 20100319
  11. METHOTREXATE [Concomitant]
     Indication: RHEUMATOID ARTHRITIS
     Route: 048
     Dates: start: 20070406, end: 20090410
  12. LOXOPROFEN SODIUM [Concomitant]
     Indication: RHEUMATOID ARTHRITIS
     Route: 048
     Dates: start: 20070101, end: 20090101
  13. MOSAPRIDE CITRATE HYDRATE [Concomitant]
     Indication: GASTRIC ULCER
     Dates: start: 20090301
  14. FOLIC ACID [Concomitant]
     Dates: start: 20090419
  15. RABEPRAZOLE SODIUM [Concomitant]
     Indication: GASTRIC ULCER
     Route: 048
     Dates: start: 20090301
  16. METHOTREXATE [Concomitant]
     Dates: start: 20090417
  17. RABEPRAZOLE SODIUM [Concomitant]
     Indication: PROPHYLAXIS AGAINST GASTROINTESTINAL ULCER
     Route: 048
     Dates: start: 20090301
  18. REBAMIPIDE [Concomitant]
     Indication: GASTRIC ULCER
     Route: 048
     Dates: start: 20090301, end: 20090603
  19. SCOPOLAMINE BUTYLBROMIDE [Concomitant]
     Indication: GASTRIC ULCER
     Dates: start: 20090301
  20. CANDESARTAN CILEXETIL [Concomitant]
     Dates: start: 20081001
  21. DICLOFENAC SODIUM [Concomitant]
     Route: 054
     Dates: start: 20090301
  22. VALPROATE SODIUM [Concomitant]
     Dates: start: 20100318

REACTIONS (2)
  - CONTUSION [None]
  - MENINGIOMA [None]
